FAERS Safety Report 21999575 (Version 1)
Quarter: 2023Q1

REPORT INFORMATION
  Report Type: Spontaneous
  Country: FR (occurrence: FR)
  Receive Date: 20230216
  Receipt Date: 20230216
  Transmission Date: 20230418
  Serious: Yes (Hospitalization)
  Sender: FDA-Public Use
  Company Number: None

PATIENT
  Age: 78 Year
  Sex: Male
  Weight: 72 kg

DRUGS (6)
  1. KYPROLIS [Suspect]
     Active Substance: CARFILZOMIB
     Indication: Plasma cell myeloma
     Dosage: 134 MILLIGRAM, QWK
     Route: 040
     Dates: start: 20230116, end: 20230116
  2. KYPROLIS [Suspect]
     Active Substance: CARFILZOMIB
     Dosage: 134 MILLIGRAM, QWK
     Route: 040
     Dates: start: 20230123, end: 20230123
  3. KYPROLIS [Suspect]
     Active Substance: CARFILZOMIB
     Dosage: 38 MILLIGRAM, QWK
     Route: 040
     Dates: start: 20230109, end: 20230109
  4. FOLIC ACID [Concomitant]
     Active Substance: FOLIC ACID
     Dosage: 15 MILLIGRAM, 3 TIMES/WK
  5. BACTRIM [Concomitant]
     Active Substance: SULFAMETHOXAZOLE\TRIMETHOPRIM
     Dosage: 2400 MILLIGRAM, QWK
  6. VALACYCLOVIR HYDROCHLORIDE [Concomitant]
     Active Substance: VALACYCLOVIR HYDROCHLORIDE
     Dosage: 500 MILLIGRAM, QD

REACTIONS (2)
  - Anuria [Recovered/Resolved]
  - Acute kidney injury [Recovered/Resolved]

NARRATIVE: CASE EVENT DATE: 20230116
